FAERS Safety Report 7927337-3 (Version None)
Quarter: 2011Q4

REPORT INFORMATION
  Report Type: 
  Country: None (occurrence: None)
  Receive Date: 20111118
  Receipt Date: 20111116
  Transmission Date: 20120403
  Serious: Yes (Death, Hospitalization)
  Sender: FDA-Public Use
  Company Number: IL-B.I. PHARMACEUTICALS,INC./RIDGEFIELD-2011-AP-00609RI

PATIENT
  Age: 78 Year
  Sex: Male

DRUGS (1)
  1. PRADAXA [Suspect]
     Indication: ATRIAL FIBRILLATION

REACTIONS (6)
  - ACCIDENT [None]
  - HAEMORRHAGE INTRACRANIAL [None]
  - CONFUSIONAL STATE [None]
  - SUBDURAL HAEMATOMA [None]
  - CHEST INJURY [None]
  - SHOCK [None]
